FAERS Safety Report 12459065 (Version 1)
Quarter: 2016Q2

REPORT INFORMATION
  Report Type: Spontaneous
  Country: US (occurrence: None)
  Receive Date: 20160610
  Receipt Date: 20160610
  Transmission Date: 20160815
  Serious: Yes (Disabling)
  Sender: FDA-Public Use
  Company Number: None

PATIENT
  Age: 69 Year
  Sex: Female
  Weight: 70.31 kg

DRUGS (9)
  1. DEXAMETHASONE. [Suspect]
     Active Substance: DEXAMETHASONE
  2. 1 ML OF 0.25% BUPIVACAINE [Suspect]
     Active Substance: BUPIVACAINE
  3. DEXAMETHASONE - 4 MG [Suspect]
     Active Substance: DEXAMETHASONE
  4. DEXAMETHASONE. [Suspect]
     Active Substance: DEXAMETHASONE
  5. 1 ML OF 0.25% BUPIVACAINE [Suspect]
     Active Substance: BUPIVACAINE
     Indication: NECK PAIN
     Dates: start: 2012
  6. 1 ML OF 0.25% BUPIVACAINE [Suspect]
     Active Substance: BUPIVACAINE
  7. STEROID BETAMETHASONE 6 MG [Suspect]
     Active Substance: BETAMETHASONE
  8. DEPO-MEDROL [Suspect]
     Active Substance: METHYLPREDNISOLONE ACETATE
  9. 1 ML OF 0.25% BUPIVACAINE [Suspect]
     Active Substance: BUPIVACAINE

REACTIONS (10)
  - Autoimmune hepatitis [None]
  - Skin ulcer haemorrhage [None]
  - Nightmare [None]
  - Chronic spontaneous urticaria [None]
  - Muscle spasms [None]
  - Burning sensation [None]
  - Pruritus [None]
  - Dermatitis [None]
  - Scar [None]
  - Wrong technique in product usage process [None]

NARRATIVE: CASE EVENT DATE: 2012
